FAERS Safety Report 19779317 (Version 1)
Quarter: 2021Q3

REPORT INFORMATION
  Report Type: Spontaneous
  Country: US (occurrence: US)
  Receive Date: 20210902
  Receipt Date: 20210902
  Transmission Date: 20211014
  Serious: Yes (Death)
  Sender: FDA-Public Use
  Company Number: None

PATIENT
  Sex: Female
  Weight: 63.9 kg

DRUGS (6)
  1. BIOTIN [Concomitant]
     Active Substance: BIOTIN
  2. LISINOPRIL?HCTZ [Concomitant]
     Active Substance: HYDROCHLOROTHIAZIDE\LISINOPRIL
  3. RUXIENCE [Suspect]
     Active Substance: RITUXIMAB-PVVR
     Indication: FOLLICULAR LYMPHOMA
     Dosage: ?          OTHER FREQUENCY:QWX4 Q6M;?
     Route: 042
  4. ANASTROZOLE. [Concomitant]
     Active Substance: ANASTROZOLE
  5. ASPIRIN. [Concomitant]
     Active Substance: ASPIRIN
  6. VITAMIN D [Concomitant]
     Active Substance: VITAMIN D NOS

REACTIONS (1)
  - Death [None]
